FAERS Safety Report 5879708-7 (Version None)
Quarter: 2008Q3

REPORT INFORMATION
  Report Type: 
  Country: None (occurrence: None)
  Receive Date: 20080911
  Receipt Date: 20080911
  Transmission Date: 20090109
  Serious: Yes (Hospitalization)
  Sender: FDA-Public Use
  Company Number: None

PATIENT
  Sex: Female
  Weight: 99 kg

DRUGS (2)
  1. CARBOPLATIN [Suspect]
     Dosage: 443 MG
  2. TAXOL [Suspect]
     Dosage: 270 MG

REACTIONS (1)
  - ARTERIAL THROMBOSIS [None]
